FAERS Safety Report 19781151 (Version 2)
Quarter: 2023Q1

REPORT INFORMATION
  Report Type: Spontaneous
  Country: DE (occurrence: DE)
  Receive Date: 20210902
  Receipt Date: 20230206
  Transmission Date: 20230417
  Serious: Yes (Life-Threatening, Hospitalization, Other)
  Sender: FDA-Public Use
  Company Number: DE-ADRED-06274-02

PATIENT
  Age: 71 Year
  Sex: Female
  Weight: 117 kg

DRUGS (18)
  1. TORSEMIDE [Suspect]
     Active Substance: TORSEMIDE
     Indication: Product used for unknown indication
     Dosage: 50 MILLIGRAM, QD,50 MG, 1-1-0-0
     Route: 065
  2. SPIRONOLACTONE [Suspect]
     Active Substance: SPIRONOLACTONE
     Indication: Product used for unknown indication
     Dosage: 80 MILLIGRAM, QD, 80 MG, 1-0-0-0
     Route: 065
  3. ACETAZOLAMIDE [Suspect]
     Active Substance: ACETAZOLAMIDE
     Indication: Product used for unknown indication
     Dosage: 250 MILLIGRAM, TID, 250 MG, 1-1-1-0
     Route: 065
  4. INDAPAMIDE [Suspect]
     Active Substance: INDAPAMIDE
     Indication: Product used for unknown indication
     Dosage: 1.5 MILLIGRAM, QD, 1.5 MG, 1-0-0-0
     Route: 065
  5. LEVOTHYROXINE SODIUM [Concomitant]
     Active Substance: LEVOTHYROXINE SODIUM
     Dosage: 25 MICROGRAM, QD, 25 ?G, 1-0-0-0
     Route: 065
  6. PANTOPRAZOLE [Concomitant]
     Active Substance: PANTOPRAZOLE
     Dosage: 40 MICROGRAM, QD, 40 MG, 1-0-0-0
     Route: 065
  7. SIMVASTATIN [Concomitant]
     Active Substance: SIMVASTATIN
     Dosage: 20 MILLIGRAM, QD, 20 MG, 0-0-1-0
     Route: 065
  8. ALLOPURINOL [Concomitant]
     Active Substance: ALLOPURINOL
     Dosage: 150 MILLIGRAM, QD, 150 MG, 1-0-0-0
     Route: 065
  9. CANDESARTAN [Concomitant]
     Active Substance: CANDESARTAN
     Dosage: 8 MILLIGRAM, BID, 8 MG, 1-0-1-0
     Route: 065
  10. DAPAGLIFLOZIN [Concomitant]
     Active Substance: DAPAGLIFLOZIN
     Dosage: 10 MILLIGRAM, QD, 10 MG, 1-0-0-0
     Route: 065
  11. HUMALOG [Concomitant]
     Active Substance: INSULIN LISPRO
     Dosage: BY SCHEDULE, SOLUTION FOR INJECTION/INFUSION
     Route: 058
  12. LANTUS [Concomitant]
     Active Substance: INSULIN GLARGINE
     Dosage: 8 INTERNATIONAL UNIT, 0-0-0-1, SOLUTION FOR INJECTION/INFUSION
     Route: 058
  13. EISEN                              /00023501/ [Concomitant]
     Dosage: 100 MILLIGRAM, QD, 100 MG, 0-1-0-0
     Route: 065
  14. KALINOR                            /00031402/ [Concomitant]
     Dosage: UNK UNK, QD, 1-1-0-0
     Route: 065
  15. METOPROLOL [Concomitant]
     Active Substance: METOPROLOL
     Dosage: 47.5 MILLIGRAM, BID, 47.5 MG, 1-0-1-0
     Route: 065
  16. ASPIRIN [Concomitant]
     Active Substance: ASPIRIN
     Dosage: 100 MILLIGRAM, QD, 100 MG, 0-1-0-0
     Route: 065
  17. SODIUM BICARBONATE [Concomitant]
     Active Substance: SODIUM BICARBONATE
     Dosage: 500 MILLIGRAM, BID, 500 MG, 1-0-1-0
     Route: 065
  18. MACROGOL W/POTASSIUM CHLORIDE/SODIU/00747901/ [Concomitant]
     Dosage: QD, 1-0-0-0, POWDER
     Route: 065

REACTIONS (2)
  - Acute kidney injury [Unknown]
  - Product prescribing error [Unknown]

NARRATIVE: CASE EVENT DATE: 20210113
